FAERS Safety Report 9097395 (Version 1)
Quarter: 2013Q1

REPORT INFORMATION
  Report Type: Spontaneous
  Country: IT (occurrence: IT)
  Receive Date: 20130212
  Receipt Date: 20130212
  Transmission Date: 20140127
  Serious: Yes (Hospitalization)
  Sender: FDA-Public Use
  Company Number: IT-TEVA-384288ISR

PATIENT
  Age: 81 Year
  Sex: Male

DRUGS (1)
  1. GEMCITABINA TEVA [Suspect]
     Indication: PANCREATIC CARCINOMA
     Dosage: 1800 MILLIGRAM DAILY; 1800MG CYCLICAL
     Route: 042
     Dates: start: 20121022, end: 20121022

REACTIONS (3)
  - Abdominal pain upper [Recovered/Resolved]
  - Dysphagia [Recovered/Resolved]
  - Gastrooesophageal reflux disease [Recovered/Resolved]
